FAERS Safety Report 5169289-8 (Version None)
Quarter: 2006Q4

REPORT INFORMATION
  Report Type: 
  Country: None (occurrence: None)
  Receive Date: 20061211
  Receipt Date: 20061128
  Transmission Date: 20070319
  Serious: Yes (Other)
  Sender: FDA-Public Use
  Company Number: TR-PURDUE-GBR_2006_0002639

PATIENT
  Age: 55 Year
  Sex: Female

DRUGS (6)
  1. MORPHINE SULFATE [Suspect]
     Indication: DRUG USE FOR UNKNOWN INDICATION
     Dosage: 40 MG, SINGLE
     Route: 008
  2. BUPIVACAINE [Concomitant]
     Indication: EPIDURAL ANAESTHESIA
     Dosage: 10 ML OF 0.25%
     Route: 008
  3. BUPIVACAINE [Concomitant]
     Dosage: 20 ML OF 0.5%
     Route: 008
  4. BUPIVACAINE [Concomitant]
     Dosage: 0.125% AT 4 ML/HR
     Route: 008
  5. FENTANYL [Concomitant]
     Indication: EPIDURAL ANAESTHESIA
     Dosage: 50 MCG
     Route: 008
  6. FENTANYL [Concomitant]
     Dosage: 2 MCG/ML AT 4ML/HR
     Route: 008

REACTIONS (9)
  - ACCIDENTAL OVERDOSE [None]
  - AGITATION [None]
  - INCORRECT DOSE ADMINISTERED [None]
  - MIOSIS [None]
  - MYOPIA [None]
  - NAUSEA [None]
  - VISUAL DISTURBANCE [None]
  - VISUAL FIELD DEFECT [None]
  - VOMITING [None]
